FAERS Safety Report 15805658 (Version 1)
Quarter: 2019Q1

REPORT INFORMATION
  Report Type: Spontaneous
  Country: US (occurrence: US)
  Receive Date: 20190110
  Receipt Date: 20190110
  Transmission Date: 20190417
  Serious: No
  Sender: FDA-Public Use
  Company Number: US-DRREDDYS-USA/USA/18/0104561

PATIENT
  Age: 46 Year
  Sex: Female
  Weight: 72.72 kg

DRUGS (2)
  1. HYDROCODONE/ACETAMINOPHEN [Concomitant]
     Active Substance: ACETAMINOPHEN\HYDROCODONE
     Indication: FOOT FRACTURE
     Dosage: 5MG/325MG
     Route: 065
  2. IBUPROFEN. [Suspect]
     Active Substance: IBUPROFEN
     Indication: FOOT FRACTURE
     Route: 048

REACTIONS (3)
  - Eructation [Unknown]
  - Swelling [Unknown]
  - Malaise [Unknown]
